FAERS Safety Report 8092578-4 (Version None)
Quarter: 2012Q1

REPORT INFORMATION
  Report Type: 
  Country: None (occurrence: None)
  Receive Date: 20120128
  Receipt Date: 20110830
  Transmission Date: 20120608
  Serious: No
  Sender: FDA-Public Use
  Company Number: US-ABBOTT-11P-163-0850074-00

PATIENT
  Sex: Female
  Weight: 55.388 kg

DRUGS (1)
  1. HUMIRA [Suspect]
     Indication: CROHN'S DISEASE
     Dates: start: 20110525

REACTIONS (2)
  - INJECTION SITE URTICARIA [None]
  - INJECTION SITE SCAR [None]
